FAERS Safety Report 24673922 (Version 2)
Quarter: 2024Q4

REPORT INFORMATION
  Report Type: Report from Study
  Country: US (occurrence: US)
  Receive Date: 20241128
  Receipt Date: 20241205
  Transmission Date: 20250114
  Serious: Yes (Death, Other)
  Sender: AMNEAL
  Company Number: US-AMNEAL PHARMACEUTICALS-2024-AMRX-02599

PATIENT
  Age: 86 Year
  Sex: Male

DRUGS (3)
  1. CARBIDOPA\LEVODOPA [Suspect]
     Active Substance: CARBIDOPA\LEVODOPA
     Indication: Parkinson^s disease
     Dosage: 48.75/195 MG, 1 CAPSULES, 4 /DAY
     Route: 048
     Dates: start: 20240711, end: 20241115
  2. MEMANTINE HYDROCHLORIDE [Suspect]
     Active Substance: MEMANTINE HYDROCHLORIDE
     Indication: Product used for unknown indication
     Dosage: UNK
     Route: 065
  3. ARICEPT [Suspect]
     Active Substance: DONEPEZIL HYDROCHLORIDE
     Indication: Product used for unknown indication
     Dosage: UNK
     Route: 065

REACTIONS (6)
  - Parkinson^s disease [Fatal]
  - Dementia [Fatal]
  - Hallucination [Unknown]
  - Ataxia [Unknown]
  - Dyspnoea [Unknown]
  - Fatigue [Unknown]

NARRATIVE: CASE EVENT DATE: 20240711
